FAERS Safety Report 7517167-9 (Version None)
Quarter: 2011Q2

REPORT INFORMATION
  Report Type: 
  Country: None (occurrence: None)
  Receive Date: 20110526
  Receipt Date: 20110526
  Transmission Date: 20111010
  Serious: Yes (Hospitalization, Other)
  Sender: FDA-Public Use
  Company Number: None

PATIENT
  Sex: Male

DRUGS (1)
  1. TRIAD ALCOHOL PREP PADS [Suspect]
     Indication: THERAPEUTIC SKIN CARE TOPICAL

REACTIONS (2)
  - INFECTION [None]
  - SEPSIS [None]
